APPROVED DRUG PRODUCT: LAC-HYDRIN
Active Ingredient: AMMONIUM LACTATE
Strength: EQ 12% BASE **Federal Register determination that product was not discontinued or withdrawn for safety or effectiveness reasons**
Dosage Form/Route: CREAM;TOPICAL
Application: N020508 | Product #001
Applicant: SUN PHARMACEUTICAL INDUSTRIES INC
Approved: Aug 29, 1996 | RLD: Yes | RS: No | Type: DISCN